FAERS Safety Report 6240225-6 (Version None)
Quarter: 2009Q2

REPORT INFORMATION
  Report Type: 
  Country: None (occurrence: None)
  Receive Date: 20090623
  Receipt Date: 20080711
  Transmission Date: 20091009
  Serious: No
  Sender: FDA-Public Use
  Company Number: US-ASTRAZENECA-2008UW07547

PATIENT
  Age: 67 Year
  Sex: Female

DRUGS (5)
  1. PULMICORT [Suspect]
     Indication: ASTHMA
     Route: 055
  2. AVALIDE [Concomitant]
  3. FELODIPINE [Concomitant]
  4. SINGULAIR [Concomitant]
  5. ZYRTEC [Concomitant]

REACTIONS (3)
  - CANDIDIASIS [None]
  - SWOLLEN TONGUE [None]
  - TONGUE BLISTERING [None]
